FAERS Safety Report 10241453 (Version 1)
Quarter: 2014Q2

REPORT INFORMATION
  Report Type: Spontaneous
  Country: GH (occurrence: GH)
  Receive Date: 20140617
  Receipt Date: 20140617
  Transmission Date: 20141212
  Serious: Yes (Disabling, Other)
  Sender: FDA-Public Use
  Company Number: GH-WATSON-2014-13520

PATIENT
  Age: 50 Year
  Sex: Female

DRUGS (6)
  1. GENTAMICIN [Suspect]
     Indication: ENDOPHTHALMITIS
     Dosage: 20 MG, UNK, IN 0.5 ML
     Route: 057
  2. GENTAMICIN [Suspect]
     Indication: PROPHYLAXIS
  3. LIDOCAINE [Suspect]
     Indication: ANAESTHESIA
     Dosage: 5 ML, UNK OF 2% SOLUTION
     Route: 056
  4. ADRENALINE                         /00003901/ [Suspect]
     Indication: ANAESTHESIA
     Dosage: 1 IN 100,000
     Route: 056
  5. DEXAMETHASONE [Concomitant]
     Indication: PRODUCT USED FOR UNKNOWN INDICATION
     Dosage: 1 MG, UNK, IN 0.5 ML
     Route: 057
  6. NIFEDIPINE [Concomitant]
     Indication: HYPERTENSION
     Dosage: 40 MG, DAILY
     Route: 048

REACTIONS (3)
  - Retinal infarction [Not Recovered/Not Resolved]
  - Optic atrophy [Not Recovered/Not Resolved]
  - Blindness [Not Recovered/Not Resolved]
